FAERS Safety Report 23935362 (Version 1)
Quarter: 2024Q2

REPORT INFORMATION
  Report Type: Spontaneous
  Country: PT (occurrence: PT)
  Receive Date: 20240604
  Receipt Date: 20240604
  Transmission Date: 20240716
  Serious: Yes (Hospitalization, Other)
  Sender: FDA-Public Use
  Company Number: PT-MLMSERVICE-20240513-PI059858-00222-1

PATIENT
  Age: 84 Year
  Sex: Female

DRUGS (4)
  1. METRONIDAZOLE [Suspect]
     Active Substance: METRONIDAZOLE
     Indication: Helicobacter infection
     Dosage: 10-DAY COURSE
     Route: 065
  2. TETRACYCLINE [Suspect]
     Active Substance: TETRACYCLINE
     Indication: Helicobacter infection
     Dosage: 10-DAY COURSE
     Route: 065
  3. BISMUTH SUBCITRATE [Concomitant]
     Active Substance: BISMUTH SUBCITRATE
     Indication: Helicobacter infection
     Dosage: 10-DAY COURSE
     Route: 065
  4. OMEPRAZOLE [Concomitant]
     Active Substance: DONEPEZIL HYDROCHLORIDE\OMEPRAZOLE\OMEPRAZOLE MAGNESIUM
     Indication: Helicobacter infection
     Dosage: 10-DAY COURSE
     Route: 065

REACTIONS (3)
  - Enterocolitis [Recovering/Resolving]
  - Clostridium difficile infection [Recovering/Resolving]
  - Pseudomembranous colitis [Recovering/Resolving]
